FAERS Safety Report 21847013 (Version 1)
Quarter: 2023Q1

REPORT INFORMATION
  Report Type: Spontaneous
  Country: US (occurrence: None)
  Receive Date: 20230110
  Receipt Date: 20230110
  Transmission Date: 20230418
  Serious: No
  Sender: FDA-Public Use
  Company Number: None

PATIENT
  Sex: Female

DRUGS (1)
  1. ICATIBANT ACETATE [Suspect]
     Active Substance: ICATIBANT ACETATE
     Indication: Complement factor abnormal
     Dosage: 30MG AS NEEDED SUB-Q
     Route: 058
     Dates: start: 202202

REACTIONS (7)
  - Musculoskeletal disorder [None]
  - Arthropathy [None]
  - Gastrointestinal disorder [None]
  - Laryngeal disorder [None]
  - Genital disorder [None]
  - Pharyngeal swelling [None]
  - Product use issue [None]
